FAERS Safety Report 22038001 (Version 1)
Quarter: 2023Q1

REPORT INFORMATION
  Report Type: Report from Study
  Country: US (occurrence: US)
  Receive Date: 20230227
  Receipt Date: 20230227
  Transmission Date: 20230417
  Serious: Yes (Hospitalization)
  Sender: FDA-Public Use
  Company Number: US-UCBSA-2023009104

PATIENT
  Age: 59 Year
  Sex: Male

DRUGS (1)
  1. CERTOLIZUMAB PEGOL [Suspect]
     Active Substance: CERTOLIZUMAB PEGOL
     Indication: Crohn^s disease
     Dosage: 2 INJ Q 28 DAYS
     Dates: start: 2016

REACTIONS (4)
  - Elbow operation [Not Recovered/Not Resolved]
  - Coronary artery bypass [Not Recovered/Not Resolved]
  - Skin infection [Not Recovered/Not Resolved]
  - Arthropathy [Not Recovered/Not Resolved]

NARRATIVE: CASE EVENT DATE: 20221025
